FAERS Safety Report 8460747-7 (Version None)
Quarter: 2012Q2

REPORT INFORMATION
  Report Type: 
  Country: None (occurrence: None)
  Receive Date: 20120622
  Receipt Date: 20120615
  Transmission Date: 20120825
  Serious: Yes (Hospitalization)
  Sender: FDA-Public Use
  Company Number: US-ROCHE-1078951

PATIENT

DRUGS (9)
  1. ASPIRIN [Concomitant]
  2. METFORMIN HCL [Concomitant]
  3. POTASSIUM CHLORIDE [Concomitant]
  4. RANIBIZUMAB [Suspect]
     Indication: DIABETIC RETINAL OEDEMA
     Dosage: LAST DOSE : /FEB/2012
     Route: 050
  5. LIPITOR [Concomitant]
  6. LANTUS [Concomitant]
  7. EXFORGE [Concomitant]
  8. NEURONTIN [Concomitant]
  9. NOVOLOG [Concomitant]

REACTIONS (1)
  - CEREBROVASCULAR ACCIDENT [None]
